FAERS Safety Report 9079783 (Version 2)
Quarter: 2013Q1

REPORT INFORMATION
  Report Type: Spontaneous
  Country: FR (occurrence: FR)
  Receive Date: 20130129
  Receipt Date: 20130319
  Transmission Date: 20140127
  Serious: Yes (Disabling, Other)
  Sender: FDA-Public Use
  Company Number: FR-009507513-1301FRA008752

PATIENT
  Age: 44 Year
  Sex: Male
  Weight: 74 kg

DRUGS (4)
  1. VIRAFERONPEG [Suspect]
     Indication: PRODUCT USED FOR UNKNOWN INDICATION
     Dosage: 100 MICROGRAM, QW
     Route: 058
     Dates: start: 20121019, end: 20121228
  2. REBETOL [Suspect]
     Indication: PRODUCT USED FOR UNKNOWN INDICATION
     Dosage: 200 MG, QD
     Route: 048
     Dates: start: 20121019, end: 20130104
  3. XANAX [Concomitant]
     Indication: PRODUCT USED FOR UNKNOWN INDICATION
     Dosage: 0.5 DF, UNK
     Route: 048
     Dates: start: 20121220, end: 20130104
  4. ZOLPIDEM TARTRATE [Concomitant]
     Indication: PRODUCT USED FOR UNKNOWN INDICATION
     Dosage: 0.5 DF, UNK
     Route: 048
     Dates: start: 201201, end: 20130104

REACTIONS (4)
  - Blindness unilateral [Not Recovered/Not Resolved]
  - Visual field defect [Not Recovered/Not Resolved]
  - Optic neuritis [Not Recovered/Not Resolved]
  - Visual acuity reduced [Not Recovered/Not Resolved]
